FAERS Safety Report 14863263 (Version 1)
Quarter: 2018Q2

REPORT INFORMATION
  Report Type: Spontaneous
  Country: US (occurrence: US)
  Receive Date: 20180508
  Receipt Date: 20180508
  Transmission Date: 20180711
  Serious: No
  Sender: FDA-Public Use
  Company Number: US-ALKERMES INC.-ALK-2017-002569

PATIENT
  Sex: Male

DRUGS (1)
  1. VIVITROL [Suspect]
     Active Substance: NALTREXONE
     Indication: DRUG DEPENDENCE
     Dosage: 380 MG, QMO
     Route: 030
     Dates: start: 20170619

REACTIONS (9)
  - Piloerection [Unknown]
  - Tremor [Unknown]
  - Drug withdrawal syndrome [Unknown]
  - Head injury [Unknown]
  - Muscle spasms [Unknown]
  - Ear injury [Unknown]
  - Loss of consciousness [Recovered/Resolved]
  - Muscle tightness [Unknown]
  - Face injury [Unknown]

NARRATIVE: CASE EVENT DATE: 201706
